FAERS Safety Report 13245835 (Version 1)
Quarter: 2017Q1

REPORT INFORMATION
  Report Type: Spontaneous
  Country: US (occurrence: US)
  Receive Date: 20170217
  Receipt Date: 20170217
  Transmission Date: 20170428
  Serious: Yes (Other)
  Sender: FDA-Public Use
  Company Number: US-009507513-1702USA007849

PATIENT
  Age: 22 Year
  Sex: Female
  Weight: 108.84 kg

DRUGS (1)
  1. NEXPLANON [Suspect]
     Active Substance: ETONOGESTREL
     Indication: CONTRACEPTION
     Dosage: 1 DF, EVERY 3 YEARS
     Route: 059
     Dates: start: 201604

REACTIONS (7)
  - Ectopic pregnancy [Unknown]
  - Pregnancy with implant contraceptive [Unknown]
  - Weight increased [Unknown]
  - Unintended pregnancy [Unknown]
  - Asthma [Unknown]
  - Vaginal haemorrhage [Unknown]
  - Urinary tract infection [Unknown]

NARRATIVE: CASE EVENT DATE: 201604
